FAERS Safety Report 8472181-4 (Version None)
Quarter: 2012Q2

REPORT INFORMATION
  Report Type: 
  Country: None (occurrence: None)
  Receive Date: 20120627
  Receipt Date: 20120619
  Transmission Date: 20120825
  Serious: Yes (Hospitalization, Other)
  Sender: FDA-Public Use
  Company Number: US-MERCK-1110USA02003

PATIENT
  Age: 72 Year
  Sex: Female
  Weight: 75 kg

DRUGS (7)
  1. LIPITOR [Concomitant]
     Indication: HYPERCHOLESTEROLAEMIA
     Route: 065
     Dates: start: 19920101
  2. TRAZODONE HYDROCHLORIDE [Concomitant]
     Indication: INSOMNIA
     Route: 065
     Dates: start: 20020314
  3. BONIVA [Concomitant]
     Indication: OSTEOPOROSIS
     Route: 048
     Dates: start: 20090101, end: 20110701
  4. FOSAMAX [Suspect]
     Indication: OSTEOPOROSIS
     Route: 048
     Dates: start: 19990101
  5. EXCEDRIN PM (ACETAMINOPHEN (+) DIPHENHYDRAMINE CITRATE) [Concomitant]
     Indication: INSOMNIA
     Route: 065
     Dates: start: 19970101
  6. AMBIEN [Concomitant]
     Indication: INSOMNIA
     Route: 065
  7. FOSAMAX [Suspect]
     Route: 048
     Dates: start: 20010901

REACTIONS (46)
  - BENIGN BONE NEOPLASM [None]
  - TOOTH DISORDER [None]
  - MUSCULOSKELETAL PAIN [None]
  - MYALGIA [None]
  - MALAISE [None]
  - BACK PAIN [None]
  - HERPES ZOSTER [None]
  - CARDIAC FAILURE CONGESTIVE [None]
  - THYROID DISORDER [None]
  - ANKLE FRACTURE [None]
  - CYST [None]
  - GASTROOESOPHAGEAL REFLUX DISEASE [None]
  - IMPAIRED HEALING [None]
  - SUICIDAL IDEATION [None]
  - SCIATICA [None]
  - HYPOTHYROIDISM [None]
  - JOINT CONTRACTURE [None]
  - DYSPNOEA [None]
  - APPENDIX DISORDER [None]
  - HAEMORRHAGIC ANAEMIA [None]
  - OSTEOMYELITIS [None]
  - CELLULITIS [None]
  - FALL [None]
  - DEPRESSION [None]
  - MUSCULAR WEAKNESS [None]
  - HYPERGLYCAEMIA [None]
  - NOCTURIA [None]
  - ISCHAEMIC CARDIOMYOPATHY [None]
  - CARDIAC FAILURE CHRONIC [None]
  - ARTHRITIS [None]
  - DIVERTICULITIS [None]
  - COLONIC POLYP [None]
  - FATIGUE [None]
  - CARDIOVASCULAR DISORDER [None]
  - FOOT OPERATION [None]
  - DIVERTICULUM [None]
  - POLLAKIURIA [None]
  - ANXIETY [None]
  - FEMUR FRACTURE [None]
  - ATRIAL FIBRILLATION [None]
  - LOWER RESPIRATORY TRACT INFECTION [None]
  - DYSLIPIDAEMIA [None]
  - DRUG INEFFECTIVE [None]
  - STRESS [None]
  - RESPIRATORY TRACT CONGESTION [None]
  - NERVOUSNESS [None]
